FAERS Safety Report 6507271-6 (Version None)
Quarter: 2009Q4

REPORT INFORMATION
  Report Type: 
  Country: None (occurrence: None)
  Receive Date: 20091221
  Receipt Date: 20091207
  Transmission Date: 20100525
  Serious: Yes (Hospitalization, Other)
  Sender: FDA-Public Use
  Company Number: US-ELI_LILLY_AND_COMPANY-US200912001912

PATIENT
  Age: 66 Year
  Sex: Female

DRUGS (14)
  1. CYMBALTA [Suspect]
     Dosage: 1 D/F, UNK
     Dates: start: 20030101
  2. CYMBALTA [Suspect]
     Dosage: 60 MG, DAILY (1/D)
  3. CYMBALTA [Suspect]
     Dosage: 30 MG, QOD
     Dates: start: 20060101, end: 20070601
  4. AMLODIPINE [Concomitant]
     Dosage: 5 MG, DAILY (1/D)
  5. ASPIRIN [Concomitant]
     Dosage: 325 MG, DAILY (1/D)
  6. CLOPIDOGREL [Concomitant]
     Dosage: 75 MG, DAILY (1/D)
  7. GABAPENTIN [Concomitant]
     Dosage: 300 MG, 3/D
  8. HYDROCODONE W/PARACETAMOL [Concomitant]
     Dosage: UNK MG, AS NEEDED
  9. OLMESARTAN [Concomitant]
     Dosage: 20 MG, DAILY (1/D)
  10. PANTOPRAZOLE [Concomitant]
     Dosage: 40 MG, DAILY (1/D)
  11. PHENYTOIN [Concomitant]
     Dosage: 100 MG, 2/D
  12. ROPINIROLE [Concomitant]
     Dosage: 2 MG, EACH EVENING
  13. SIMVASTATIN [Concomitant]
     Dosage: 20 MG, EACH EVENING
  14. HYDROCHLORZIDE [Concomitant]
     Dosage: 1 D/F, UNK
     Dates: end: 20060101

REACTIONS (14)
  - AMNESIA [None]
  - ANXIETY [None]
  - CAROTID ARTERY STENOSIS [None]
  - COMPLEX PARTIAL SEIZURES [None]
  - CRYING [None]
  - FATIGUE [None]
  - HYPONATRAEMIA [None]
  - INAPPROPRIATE ANTIDIURETIC HORMONE SECRETION [None]
  - LETHARGY [None]
  - MUSCULAR WEAKNESS [None]
  - NAUSEA [None]
  - OEDEMA [None]
  - PERSONALITY CHANGE [None]
  - TRANSIENT ISCHAEMIC ATTACK [None]
